FAERS Safety Report 9140009 (Version 2)
Quarter: 2013Q2

REPORT INFORMATION
  Report Type: Spontaneous
  Country: BR (occurrence: BR)
  Receive Date: 20130305
  Receipt Date: 20130514
  Transmission Date: 20140414
  Serious: Yes (Other)
  Sender: FDA-Public Use
  Company Number: BR-ABBOTT-13P-020-1055957-00

PATIENT
  Age: 55 Year
  Sex: Male

DRUGS (9)
  1. HUMIRA [Suspect]
     Indication: RHEUMATOID ARTHRITIS
     Route: 058
  2. HUMIRA [Suspect]
     Indication: ANKYLOSING SPONDYLITIS
  3. ASPIRIN [Concomitant]
     Indication: ANTICOAGULANT THERAPY
     Route: 048
  4. CARDIZEM [Concomitant]
     Indication: CARDIAC DISORDER
     Route: 048
     Dates: start: 2003
  5. TECNOMET [Concomitant]
     Indication: RHEUMATOID ARTHRITIS
     Dosage: 3 TB IN THE MORNING, 3 TB IN THE AFTERNOON IN THE SAME DAY. ONCE A WEEK.
     Route: 048
  6. TECNOMET [Concomitant]
     Indication: ANKYLOSING SPONDYLITIS
  7. PRELONE [Concomitant]
     Indication: PAIN
     Route: 048
  8. SUSTRATE [Concomitant]
     Indication: CHEST PAIN
  9. SUSTRATE [Concomitant]
     Dates: start: 20130508

REACTIONS (9)
  - Arterial occlusive disease [Recovered/Resolved]
  - Coronary artery occlusion [Not Recovered/Not Resolved]
  - Infarction [Recovered/Resolved]
  - Injection site pain [Recovered/Resolved]
  - Injection site pain [Recovered/Resolved]
  - Injection site mass [Recovered/Resolved]
  - Chest pain [Recovered/Resolved]
  - Anxiety [Not Recovered/Not Resolved]
  - Nausea [Unknown]
